FAERS Safety Report 13818853 (Version 2)
Quarter: 2017Q4

REPORT INFORMATION
  Report Type: Spontaneous
  Country: US (occurrence: US)
  Receive Date: 20170801
  Receipt Date: 20171206
  Transmission Date: 20180320
  Serious: Yes (Hospitalization, Other)
  Sender: FDA-Public Use
  Company Number: US-ELI_LILLY_AND_COMPANY-US201707008719

PATIENT
  Age: 63 Year
  Sex: Female

DRUGS (1)
  1. ADCIRCA [Suspect]
     Active Substance: TADALAFIL
     Indication: PULMONARY HYPERTENSION
     Dosage: 40 MG, DAILY
     Route: 065

REACTIONS (6)
  - Unresponsive to stimuli [Unknown]
  - Urinary tract infection [Not Recovered/Not Resolved]
  - Hepatic cirrhosis [Not Recovered/Not Resolved]
  - Urinary tract infection [Unknown]
  - Pneumonia [Not Recovered/Not Resolved]
  - Ammonia increased [Unknown]

NARRATIVE: CASE EVENT DATE: 20170624
